FAERS Safety Report 8763305 (Version 2)
Quarter: 2012Q4

REPORT INFORMATION
  Report Type: 
  Country: US (occurrence: US)
  Receive Date: 20120831
  Receipt Date: 20120927
  Transmission Date: 20130627
  Serious: No
  Sender: FDA-Public Use
  Company Number: US-PFIZER INC-2012213820

PATIENT
  Age: 63 Year
  Sex: Female
  Weight: 100 kg

DRUGS (2)
  1. PRISTIQ [Suspect]
     Indication: DEPRESSION
     Dosage: 50 mg,daily
     Route: 048
     Dates: start: 20120701, end: 201207
  2. PRISTIQ [Suspect]
     Dosage: 50 mg, alternate day
     Route: 048
     Dates: start: 201207

REACTIONS (5)
  - Inappropriate schedule of drug administration [Unknown]
  - Wrong technique in drug usage process [Unknown]
  - Rash [Unknown]
  - Insomnia [Unknown]
  - Drug intolerance [Unknown]
